FAERS Safety Report 9176280 (Version 2)
Quarter: 2013Q2

REPORT INFORMATION
  Report Type: Spontaneous
  Country: US (occurrence: US)
  Receive Date: 20130321
  Receipt Date: 20130619
  Transmission Date: 20140414
  Serious: No
  Sender: FDA-Public Use
  Company Number: US-009507513-1303USA007301

PATIENT
  Age: 25 Year
  Sex: Female

DRUGS (2)
  1. IMPLANON [Suspect]
     Dosage: 68 MG, ONE EVERY 3 YEARS
     Route: 059
     Dates: start: 20100320, end: 20130312
  2. NEXPLANON [Concomitant]
     Dosage: 1 DF, UNK
     Dates: start: 20130312

REACTIONS (3)
  - Device breakage [Recovered/Resolved]
  - Complication of device removal [Recovered/Resolved]
  - No adverse event [Unknown]
